FAERS Safety Report 9092121 (Version 1)
Quarter: 2013Q1

REPORT INFORMATION
  Report Type: Report from Study
  Country: US (occurrence: US)
  Receive Date: 20130131
  Receipt Date: 20130131
  Transmission Date: 20140127
  Serious: No
  Sender: FDA-Public Use
  Company Number: US-ABBOTT-12P-163-0990714-00

PATIENT
  Age: 24 Year
  Sex: Female

DRUGS (12)
  1. HUMIRA [Suspect]
     Indication: CROHN^S DISEASE
     Dates: start: 201011
  2. ASACOL [Concomitant]
     Indication: PRODUCT USED FOR UNKNOWN INDICATION
  3. PREVACID [Concomitant]
     Indication: PRODUCT USED FOR UNKNOWN INDICATION
     Dosage: 30MG DAILY
  4. CALCIUM [Concomitant]
     Indication: PRODUCT USED FOR UNKNOWN INDICATION
     Dosage: 1000MG DAILY
  5. VITAMIN D [Concomitant]
     Indication: PRODUCT USED FOR UNKNOWN INDICATION
     Dosage: 1000 IU DAILY
  6. LEXAPRO [Concomitant]
     Indication: ANXIETY
     Dosage: 10MG DAILY
  7. FOLIC ACID [Concomitant]
     Indication: PRODUCT USED FOR UNKNOWN INDICATION
     Dosage: 1MG DAILY
  8. MULTIVITAMIN [Concomitant]
     Indication: INFLAMMATORY BOWEL DISEASE
     Dosage: EVERY DAY
  9. YAZ [Concomitant]
     Indication: CONTRACEPTION
     Dosage: EVERY DAY
  10. CLARITIN [Concomitant]
     Indication: SINUSITIS
     Dosage: 10MG DAILY
  11. SINGULAIR [Concomitant]
     Indication: SINUSITIS
     Dosage: 10MG DAILY
  12. PREDNISONE [Concomitant]
     Indication: PRODUCT USED FOR UNKNOWN INDICATION
     Dosage: 15MG DAILY; DOSE TAPERING BY 5 MG EVERY WEEK

REACTIONS (1)
  - Proctitis [Not Recovered/Not Resolved]
